FAERS Safety Report 6788430-4 (Version None)
Quarter: 2010Q2

REPORT INFORMATION
  Report Type: 
  Country: None (occurrence: None)
  Receive Date: 20100621
  Receipt Date: 20100609
  Transmission Date: 20101027
  Serious: Yes (Hospitalization, Other)
  Sender: FDA-Public Use
  Company Number: 7007458

PATIENT
  Age: 51 Year
  Sex: Female
  Weight: 54 kg

DRUGS (3)
  1. REBIF [Suspect]
     Indication: MULTIPLE SCLEROSIS
     Dosage: 44 MCG, 3 IN 1 WK, SUBCUTANEOUS
     Route: 058
     Dates: start: 20070730
  2. SOMA [Concomitant]
  3. TYLENOL PM [Concomitant]

REACTIONS (8)
  - CERVIX CARCINOMA [None]
  - HUMAN POLYOMAVIRUS INFECTION [None]
  - INJECTION SITE ERYTHEMA [None]
  - INTERVERTEBRAL DISC PROTRUSION [None]
  - NECK PAIN [None]
  - RADICAL HYSTERECTOMY [None]
  - SPINAL CORD COMPRESSION [None]
  - UTERINE CANCER [None]
